FAERS Safety Report 9504775 (Version 2)
Quarter: 2014Q2

REPORT INFORMATION
  Report Type: Spontaneous
  Country: US (occurrence: US)
  Receive Date: 20130906
  Receipt Date: 20140402
  Transmission Date: 20141212
  Serious: Yes (Hospitalization)
  Sender: FDA-Public Use
  Company Number: US-B.I. PHARMACEUTICALS,INC./RIDGEFIELD-2013-BI-27066BP

PATIENT
  Sex: Male
  Weight: 158.76 kg

DRUGS (9)
  1. PRADAXA [Suspect]
     Indication: ANTICOAGULANT THERAPY
     Dosage: 300 MG
     Route: 048
     Dates: start: 20110901, end: 20120518
  2. ASPIRIN [Concomitant]
     Dosage: 81 MG
     Route: 048
  3. CARVEDILOL [Concomitant]
     Dosage: 50 MG
     Route: 048
  4. VITAMIN D3 [Concomitant]
     Dosage: 4000 U
     Route: 048
  5. IRON [Concomitant]
     Dosage: 325 MG
     Route: 048
  6. GABAPENTIN [Concomitant]
     Dosage: 1800 MG
     Route: 048
     Dates: start: 2007, end: 2012
  7. LOSARTAN [Concomitant]
     Dosage: 100 MG
     Route: 048
  8. MULTIVITAMIN [Concomitant]
     Route: 048
  9. ANDROGEL [Concomitant]
     Route: 061

REACTIONS (2)
  - Lower gastrointestinal haemorrhage [Recovered/Resolved]
  - Anaemia [Unknown]
